FAERS Safety Report 14455749 (Version 1)
Quarter: 2018Q1

REPORT INFORMATION
  Report Type: Spontaneous
  Country: DE (occurrence: DE)
  Receive Date: 20180130
  Receipt Date: 20180130
  Transmission Date: 20180509
  Serious: Yes (Hospitalization)
  Sender: FDA-Public Use
  Company Number: DE-CONCORDIA PHARMACEUTICALS INC.-E2B_00009603

PATIENT
  Age: 70 Year
  Sex: Female

DRUGS (14)
  1. ASS 100 [Concomitant]
     Active Substance: ASPIRIN
     Route: 048
  2. TRANYLCYPROMINE [Suspect]
     Active Substance: TRANYLCYPROMINE
     Dosage: 20-50MG
     Route: 048
     Dates: start: 20160708, end: 20160725
  3. TORASEMID [Concomitant]
     Active Substance: TORSEMIDE
     Route: 048
  4. PROTHIPENDYL [Concomitant]
     Active Substance: PROTHIPENDYL
     Route: 048
  5. TRANYLCYPROMINE [Suspect]
     Active Substance: TRANYLCYPROMINE
     Dosage: 60-0
     Route: 048
     Dates: start: 20160801, end: 20160827
  6. L-THYROXIN [Concomitant]
     Active Substance: LEVOTHYROXINE SODIUM
     Route: 048
  7. TRANYLCYPROMINE [Suspect]
     Active Substance: TRANYLCYPROMINE
     Route: 048
     Dates: start: 20160706, end: 20160707
  8. PANTOPRAZOL [Concomitant]
     Active Substance: PANTOPRAZOLE SODIUM
     Route: 048
  9. MELPERON [Concomitant]
     Active Substance: MELPERONE
     Route: 048
  10. ARIPIPRAZOL [Concomitant]
     Active Substance: ARIPIPRAZOLE
     Route: 048
  11. TRANYLCYPROMINE [Suspect]
     Active Substance: TRANYLCYPROMINE
     Route: 048
     Dates: start: 20160726, end: 20160731
  12. SIMVASTATIN. [Concomitant]
     Active Substance: SIMVASTATIN
     Route: 048
  13. CANDESARTAN. [Concomitant]
     Active Substance: CANDESARTAN
     Route: 048
  14. MIRTAZAPIN [Concomitant]
     Active Substance: MIRTAZAPINE
     Route: 048

REACTIONS (2)
  - Hallucination [Recovered/Resolved]
  - Delusion [Recovered/Resolved]

NARRATIVE: CASE EVENT DATE: 20160726
